FAERS Safety Report 18466772 (Version 1)
Quarter: 2020Q4

REPORT INFORMATION
  Report Type: Spontaneous
  Country: None (occurrence: AU)
  Receive Date: 20201105
  Receipt Date: 20201105
  Transmission Date: 20210114
  Serious: Yes (Death)
  Sender: FDA-Public Use
  Company Number: AU-ORION CORPORATION ORION PHARMA-20_00011591

PATIENT

DRUGS (1)
  1. METHOTREXATE. [Suspect]
     Active Substance: METHOTREXATE
     Indication: IMMUNE SYSTEM DISORDER
     Route: 065

REACTIONS (2)
  - Sepsis [Fatal]
  - Intestinal pseudo-obstruction [Fatal]
